FAERS Safety Report 23389161 (Version 1)
Quarter: 2024Q1

REPORT INFORMATION
  Report Type: Report from Study
  Country: US (occurrence: US)
  Receive Date: 20240110
  Receipt Date: 20240110
  Transmission Date: 20240409
  Serious: Yes (Other)
  Sender: FDA-Public Use
  Company Number: US-GILEAD-2024-0656932

PATIENT
  Sex: Male

DRUGS (2)
  1. LENACAPAVIR [Suspect]
     Active Substance: LENACAPAVIR
     Indication: HIV infection
     Dosage: 1.5ML, INJECTION
     Route: 065
  2. LENACAPAVIR [Suspect]
     Active Substance: LENACAPAVIR
     Dosage: 300 MG, ORAL, 2 TABLETS PER DAY FOR 2 DAYS // 1.5ML, INJECTION, EVERY 6 MONTHS
     Route: 065

REACTIONS (2)
  - Immunodeficiency [Not Recovered/Not Resolved]
  - Urticaria [Not Recovered/Not Resolved]
